FAERS Safety Report 11553990 (Version 1)
Quarter: 2015Q3

REPORT INFORMATION
  Report Type: Spontaneous
  Country: US (occurrence: US)
  Receive Date: 20150903
  Receipt Date: 20150903
  Transmission Date: 20151125
  Serious: No
  Sender: FDA-Public Use
  Company Number: US-ELI_LILLY_AND_COMPANY-US201008001712

PATIENT
  Sex: Male

DRUGS (11)
  1. GLIMEPIRID [Concomitant]
     Active Substance: GLIMEPIRIDE
  2. BYETTA [Concomitant]
     Active Substance: EXENATIDE
  3. HUMALOG [Suspect]
     Active Substance: INSULIN LISPRO
     Indication: DIABETES MELLITUS
     Dosage: UNK, 3/D
  4. METFORMIN [Concomitant]
     Active Substance: METFORMIN HYDROCHLORIDE
  5. BISOPROLOL [Concomitant]
     Active Substance: BISOPROLOL
  6. CLINORIL [Concomitant]
     Active Substance: SULINDAC
  7. NORVASC [Concomitant]
     Active Substance: AMLODIPINE BESYLATE
  8. SIMVASTIN [Concomitant]
     Active Substance: SIMVASTATIN
  9. CARISOPRODOL. [Concomitant]
     Active Substance: CARISOPRODOL
  10. VALIUM [Concomitant]
     Active Substance: DIAZEPAM
  11. LANTUS [Concomitant]
     Active Substance: INSULIN GLARGINE

REACTIONS (2)
  - Pain in extremity [Not Recovered/Not Resolved]
  - Headache [Not Recovered/Not Resolved]
